FAERS Safety Report 24986948 (Version 1)
Quarter: 2025Q1

REPORT INFORMATION
  Report Type: Spontaneous
  Country: CN (occurrence: CN)
  Receive Date: 20250219
  Receipt Date: 20250219
  Transmission Date: 20250409
  Serious: Yes (Other)
  Sender: MERCK SHARP & DOHME LLC
  Company Number: CN-009507513-2255094

PATIENT
  Age: 60 Year
  Sex: Male

DRUGS (8)
  1. KEYTRUDA [Suspect]
     Active Substance: PEMBROLIZUMAB
     Indication: Hepatic cancer
     Route: 041
     Dates: start: 20250114, end: 20250114
  2. KEYTRUDA [Suspect]
     Active Substance: PEMBROLIZUMAB
     Indication: Hepatic cancer
     Dates: start: 20240922, end: 20240922
  3. KEYTRUDA [Suspect]
     Active Substance: PEMBROLIZUMAB
     Indication: Hepatic cancer
     Dates: start: 20241016, end: 20241016
  4. KEYTRUDA [Suspect]
     Active Substance: PEMBROLIZUMAB
     Indication: Hepatic cancer
     Dates: start: 20241108, end: 20241108
  5. KEYTRUDA [Suspect]
     Active Substance: PEMBROLIZUMAB
     Indication: Hepatic cancer
     Dates: start: 20241129, end: 20241129
  6. KEYTRUDA [Suspect]
     Active Substance: PEMBROLIZUMAB
     Indication: Hepatic cancer
     Dates: start: 20241224, end: 20241224
  7. LENVATINIB [Suspect]
     Active Substance: LENVATINIB
     Dosage: 8 MG, QD
     Route: 048
     Dates: start: 2024
  8. SODIUM CHLORIDE [Concomitant]
     Active Substance: SODIUM CHLORIDE
     Indication: Hepatic cancer
     Route: 041
     Dates: start: 20250114, end: 20250114

REACTIONS (7)
  - Myelosuppression [Recovering/Resolving]
  - Hepatitis B [Unknown]
  - Product use issue [Unknown]
  - Inappropriate schedule of product administration [Unknown]
  - Inappropriate schedule of product administration [Unknown]
  - Inappropriate schedule of product administration [Unknown]
  - Transcatheter arterial chemoembolisation [Unknown]

NARRATIVE: CASE EVENT DATE: 20240922
